FAERS Safety Report 20415356 (Version 1)
Quarter: 2022Q1

REPORT INFORMATION
  Report Type: Report from Study
  Country: US (occurrence: US)
  Receive Date: 20220202
  Receipt Date: 20220202
  Transmission Date: 20220424
  Serious: Yes (Other)
  Sender: FDA-Public Use
  Company Number: US-JNJFOC-20220147624

PATIENT
  Sex: Male

DRUGS (6)
  1. ERLEADA [Suspect]
     Active Substance: APALUTAMIDE
     Indication: Prostate cancer
     Route: 048
  2. ERLEADA [Suspect]
     Active Substance: APALUTAMIDE
     Dosage: 300-480 MG DAILY
     Route: 048
  3. ERLEADA [Suspect]
     Active Substance: APALUTAMIDE
     Dosage: 30-180 MG DAILY
     Route: 048
  4. ABIRATERONE [Concomitant]
     Active Substance: ABIRATERONE
  5. PREDNISONE [Concomitant]
     Active Substance: PREDNISONE
  6. EVEROLIMUS [Concomitant]
     Active Substance: EVEROLIMUS

REACTIONS (11)
  - Rash maculo-papular [Unknown]
  - Rash erythematous [Unknown]
  - Xerosis [Unknown]
  - Eczema [Unknown]
  - Dermatitis psoriasiform [Unknown]
  - Urticaria [Unknown]
  - Pruritus [Unknown]
  - Dermatitis acneiform [Unknown]
  - Oral lichen planus [Unknown]
  - Petechiae [Unknown]
  - Alopecia [Unknown]
